FAERS Safety Report 6505932-6 (Version None)
Quarter: 2009Q4

REPORT INFORMATION
  Report Type: 
  Country: None (occurrence: None)
  Receive Date: 20091218
  Receipt Date: 20091211
  Transmission Date: 20100525
  Serious: Yes (Hospitalization, Disabling)
  Sender: FDA-Public Use
  Company Number: PR-MERCK-0805USA02820

PATIENT
  Age: 67 Year
  Sex: Female

DRUGS (5)
  1. FOSAMAX [Suspect]
     Indication: OSTEOPOROSIS
     Route: 048
     Dates: start: 20000101, end: 20070101
  2. FOSAMAX [Suspect]
     Route: 048
     Dates: start: 20011219, end: 20060911
  3. NOVOLIN [Concomitant]
     Route: 065
     Dates: start: 19990714, end: 20020110
  4. HUMULIN R [Concomitant]
     Route: 065
     Dates: start: 19990714, end: 20020110
  5. SYNTHROID [Concomitant]
     Indication: HYPOTHYROIDISM
     Route: 065
     Dates: start: 19990701

REACTIONS (20)
  - ANXIETY [None]
  - BONE DENSITY DECREASED [None]
  - CARDIOVASCULAR DISORDER [None]
  - CATARACT [None]
  - CONJUNCTIVITIS [None]
  - DEPRESSION [None]
  - DIABETES MELLITUS [None]
  - DYSLIPIDAEMIA [None]
  - GASTRITIS [None]
  - GASTROOESOPHAGEAL REFLUX DISEASE [None]
  - GINGIVAL BLEEDING [None]
  - GINGIVAL INFECTION [None]
  - IMPAIRED HEALING [None]
  - LOOSE TOOTH [None]
  - MYOSITIS [None]
  - NEPHROLITHIASIS [None]
  - OSTEONECROSIS [None]
  - SKIN IRRITATION [None]
  - TORTICOLLIS [None]
  - VAGINAL INFECTION [None]
